FAERS Safety Report 9457378 (Version 2)
Quarter: 2013Q3

REPORT INFORMATION
  Report Type: Report from Study
  Country: US (occurrence: US)
  Receive Date: 20130814
  Receipt Date: 20130910
  Transmission Date: 20140515
  Serious: Yes (Life-Threatening, Hospitalization, Other)
  Sender: FDA-Public Use
  Company Number: US-PFIZER INC-2012087631

PATIENT
  Age: 69 Year
  Sex: Female
  Weight: 73.98 kg

DRUGS (11)
  1. TOFACITINIB CITRATE [Suspect]
     Indication: RHEUMATOID ARTHRITIS
     Dosage: 10 MG, 2X/DAY
     Route: 048
     Dates: start: 20100226, end: 20120404
  2. ALEVE [Suspect]
     Indication: RHEUMATOID ARTHRITIS
     Dosage: 440 MG, 2X/DAY
     Route: 048
     Dates: start: 20090810, end: 20120420
  3. ACETAMINOPHEN W/OXYCODONE [Concomitant]
     Indication: BACK PAIN
     Dosage: 500-5 MG, Q 8 HRS PRN
     Route: 048
     Dates: start: 20111117
  4. DULCOLAX [Concomitant]
     Indication: CONSTIPATION
     Dosage: 1-2 TABLETS, DAILY
     Route: 048
     Dates: start: 20111124
  5. ATENOLOL [Concomitant]
     Indication: HYPERTENSION
     Dosage: 25 MG, 1X/DAY
     Route: 048
     Dates: start: 20050414
  6. ATENOLOL [Concomitant]
     Dosage: 50 MG, 1X/DAY
     Route: 048
     Dates: start: 20060602
  7. CHONDROITIN/GLUCOSAMINE [Concomitant]
     Indication: PROPHYLAXIS
     Dosage: 1500 MG, DAILY
     Route: 048
     Dates: start: 20040714
  8. CALCIUM WITH VITAMIN D [Concomitant]
     Indication: OSTEOPENIA
     Dosage: 1 TABLET DAILY
     Route: 048
     Dates: start: 20040415
  9. MULTIVITAMINS [Concomitant]
     Indication: PROPHYLAXIS
     Dosage: 1 TABLET, DAILY
     Route: 048
     Dates: start: 1992
  10. TYLENOL [Concomitant]
     Indication: RHEUMATOID ARTHRITIS
     Dosage: 1300 MG, AS NEEDED
     Route: 048
     Dates: start: 20040714
  11. IBUPROFEN [Concomitant]
     Indication: RHEUMATOID ARTHRITIS
     Dosage: 200 MG, AS NEEDED
     Route: 048
     Dates: start: 20040714

REACTIONS (2)
  - Cerebral haematoma [Recovered/Resolved]
  - Hypertension [Recovered/Resolved]
